FAERS Safety Report 9882166 (Version 1)
Quarter: 2014Q1

REPORT INFORMATION
  Report Type: Spontaneous
  Country: DE (occurrence: DE)
  Receive Date: 20140207
  Receipt Date: 20140207
  Transmission Date: 20141002
  Serious: Yes (Life-Threatening, Other)
  Sender: FDA-Public Use
  Company Number: DE-WATSON-2014-01660

PATIENT
  Age: 49 Year
  Sex: Male
  Weight: 82 kg

DRUGS (2)
  1. SUMATRIPTAN (UNKNOWN) [Suspect]
     Indication: HEADACHE
     Dosage: 100 MG, TOTAL
     Route: 048
  2. SUMATRIPTAN (UNKNOWN) [Suspect]
     Indication: OFF LABEL USE

REACTIONS (4)
  - Angina unstable [Recovered/Resolved]
  - Arteriospasm coronary [Recovered/Resolved]
  - Electrocardiogram ST segment elevation [Recovered/Resolved]
  - Off label use [Recovered/Resolved]
